FAERS Safety Report 23676041 (Version 1)
Quarter: 2024Q1

REPORT INFORMATION
  Report Type: Spontaneous
  Country: US (occurrence: US)
  Receive Date: 20240327
  Receipt Date: 20240327
  Transmission Date: 20240410
  Serious: Yes (Other)
  Sender: FDA-Public Use
  Company Number: US-SA-SAC20240325000653

PATIENT
  Age: 77 Year
  Sex: Female
  Weight: 77.11 kg

DRUGS (5)
  1. DUPIXENT [Suspect]
     Active Substance: DUPILUMAB
     Indication: Asthma
     Dosage: 200 MG, QOW
     Route: 058
  2. EPIPEN [Concomitant]
     Active Substance: EPINEPHRINE
     Dosage: UNK
  3. VITAMINS [Concomitant]
     Active Substance: VITAMINS
     Dosage: UNK
  4. VALSARTAN [Concomitant]
     Active Substance: VALSARTAN
     Dosage: UNK
  5. ACETAMINOPHEN\HYDROCODONE [Concomitant]
     Active Substance: ACETAMINOPHEN\HYDROCODONE
     Dosage: UNK

REACTIONS (6)
  - Spinal operation [Unknown]
  - Procedural pain [Unknown]
  - Urinary tract infection [Unknown]
  - Oropharyngeal pain [Unknown]
  - Pruritus [Unknown]
  - Rash [Unknown]

NARRATIVE: CASE EVENT DATE: 20240101
